FAERS Safety Report 8554597-0 (Version None)
Quarter: 2012Q3

REPORT INFORMATION
  Report Type: 
  Country: None (occurrence: None)
  Receive Date: 20120731
  Receipt Date: 20120726
  Transmission Date: 20120928
  Serious: No
  Sender: FDA-Public Use
  Company Number: US-PFIZER INC-2012182543

PATIENT
  Sex: Male
  Weight: 103 kg

DRUGS (4)
  1. AMLODIPINE BESYLATE [Interacting]
     Dosage: 2.5 MG, DAILY
     Dates: start: 20120701, end: 20120725
  2. AMLODIPINE BESYLATE [Interacting]
     Dosage: UNK
     Dates: start: 20120501
  3. AMLODIPINE BESYLATE [Interacting]
     Dosage: 2.5 MG, 2X/DAY
     Dates: start: 20120719
  4. AMLODIPINE BESYLATE [Suspect]
     Indication: ANTICOAGULANT THERAPY
     Dosage: 2.5 MG, DAILY

REACTIONS (2)
  - TINNITUS [None]
  - DRUG INTERACTION [None]
